FAERS Safety Report 10142198 (Version 1)
Quarter: 2014Q2

REPORT INFORMATION
  Report Type: Spontaneous
  Country: US (occurrence: US)
  Receive Date: 20140430
  Receipt Date: 20140430
  Transmission Date: 20141212
  Serious: No
  Sender: FDA-Public Use
  Company Number: US-SANOFI-AVENTIS-2013SA081424

PATIENT
  Sex: 0

DRUGS (1)
  1. CLOMID [Suspect]
     Route: 048
     Dates: start: 201308

REACTIONS (3)
  - Emotional disorder [Unknown]
  - Mood swings [Unknown]
  - Hot flush [Unknown]
